FAERS Safety Report 17589879 (Version 2)
Quarter: 2021Q2

REPORT INFORMATION
  Report Type: Spontaneous
  Country: US (occurrence: US)
  Receive Date: 20200327
  Receipt Date: 20210413
  Transmission Date: 20210716
  Serious: No
  Sender: FDA-Public Use
  Company Number: US-ALLERGAN-2003072US

PATIENT
  Age: 70 Year
  Sex: Female

DRUGS (3)
  1. LUBRIDERM [Suspect]
     Active Substance: AVOBENZONE\HOMOSALATE\OCTISALATE\OCTOCRYLENE\OXYBENZONE
     Indication: PRODUCT USED FOR UNKNOWN INDICATION
     Dosage: UNK
     Route: 061
     Dates: start: 1990
  2. LUMIGAN [Suspect]
     Active Substance: BIMATOPROST
     Indication: GLAUCOMA
     Dosage: 2 GTT, QHS
     Route: 047
     Dates: start: 2018
  3. HUMIRA [Suspect]
     Active Substance: ADALIMUMAB
     Indication: BACK PAIN
     Dosage: UNK
     Dates: start: 2010

REACTIONS (7)
  - Blister [Not Recovered/Not Resolved]
  - Eye swelling [Not Recovered/Not Resolved]
  - Eyelid exfoliation [Not Recovered/Not Resolved]
  - Dermatitis contact [Recovered/Resolved]
  - Pruritus [Recovered/Resolved]
  - Skin burning sensation [Unknown]
  - Erythema of eyelid [Not Recovered/Not Resolved]
